FAERS Safety Report 5079585-0 (Version None)
Quarter: 2006Q3

REPORT INFORMATION
  Report Type: 
  Country: None (occurrence: None)
  Receive Date: 20060720
  Receipt Date: 20051021
  Transmission Date: 20061208
  Serious: Yes (Hospitalization)
  Sender: FDA-Public Use
  Company Number: 2005091666

PATIENT
  Sex: Male

DRUGS (5)
  1. CELEBREX [Suspect]
     Indication: OSTEOARTHRITIS
     Dosage: 200 MG (200 MG, 1 IN 1 D), UNKNOWN
  2. GLUCOPHAGE [Concomitant]
  3. TAMSULOSIN HYDROCHLORIDE (TAMSULOSIN HYDROCHLORIDE) [Concomitant]
  4. PRAVACHOL [Concomitant]
  5. AVALIDE [Concomitant]

REACTIONS (4)
  - GASTRIC DISORDER [None]
  - IRON DEFICIENCY ANAEMIA [None]
  - NAUSEA [None]
  - VOMITING [None]
